FAERS Safety Report 9644155 (Version 2)
Quarter: 2013Q4

REPORT INFORMATION
  Report Type: Spontaneous
  Country: GB (occurrence: GB)
  Receive Date: 20131024
  Receipt Date: 20131120
  Transmission Date: 20140711
  Serious: Yes (Other)
  Sender: FDA-Public Use
  Company Number: GB-ROCHE-1292714

PATIENT
  Age: 41 Year
  Sex: Female

DRUGS (6)
  1. CELLCEPT [Suspect]
     Indication: SYSTEMIC LUPUS ERYTHEMATOSUS
     Route: 048
     Dates: end: 201310
  2. HYDROXYCHLOROQUINE [Concomitant]
     Indication: SYSTEMIC LUPUS ERYTHEMATOSUS
     Route: 048
  3. PREDNISOLONE [Concomitant]
     Indication: SYSTEMIC LUPUS ERYTHEMATOSUS
     Route: 048
  4. PHENOXYMETHYLPENICILLIN [Concomitant]
     Route: 048
  5. CANDESARTAN [Concomitant]
     Route: 048
  6. CLOPIDOGREL [Concomitant]
     Route: 048
     Dates: start: 201309

REACTIONS (1)
  - Progressive multifocal leukoencephalopathy [Unknown]
